FAERS Safety Report 16418802 (Version 2)
Quarter: 2019Q2

REPORT INFORMATION
  Report Type: Spontaneous
  Country: FR (occurrence: FR)
  Receive Date: 20190612
  Receipt Date: 20190621
  Transmission Date: 20190711
  Serious: Yes (Other)
  Sender: FDA-Public Use
  Company Number: FR-AUROBINDO-AUR-APL-2019-033200

PATIENT

DRUGS (2)
  1. VALPROIC ACID. [Suspect]
     Active Substance: VALPROIC ACID
     Dosage: 250 MILLIGRAM, ONCE A DAY (QD)
     Route: 065
  2. VALPROIC ACID. [Suspect]
     Active Substance: VALPROIC ACID
     Indication: MANIA
     Dosage: 2000 MILLIGRAM, ONCE A DAY (QD)
     Route: 065

REACTIONS (12)
  - Agitation [Unknown]
  - Catatonia [Unknown]
  - Dyspraxia [Unknown]
  - Disorientation [Unknown]
  - Memory impairment [Unknown]
  - Depression [Unknown]
  - Symptom masked [Unknown]
  - Extrapyramidal disorder [Unknown]
  - Stupor [Unknown]
  - Therapeutic response unexpected [Unknown]
  - Hyperreflexia [Unknown]
  - Amnesia [Unknown]
